FAERS Safety Report 4412610-6 (Version None)
Quarter: 2004Q2

REPORT INFORMATION
  Report Type: 
  Country: None (occurrence: None)
  Receive Date: 20040630
  Receipt Date: 20040309
  Transmission Date: 20050107
  Serious: No
  Sender: FDA-Public Use
  Company Number: 04P-163-0252971-00

PATIENT

DRUGS (4)
  1. HUMIRA [Suspect]
     Indication: RHEUMATOID ARTHRITIS
     Dosage: 40 MG, 1 IN 2 WK, SUBCUTANEOUS
     Route: 058
     Dates: start: 20040219
  2. LEVOTHYROXINE SODIUM [Concomitant]
  3. BENECOR [Concomitant]
  4. CRESTOR [Concomitant]

REACTIONS (1)
  - INJECTION SITE ERYTHEMA [None]
